FAERS Safety Report 18404926 (Version 1)
Quarter: 2020Q4

REPORT INFORMATION
  Report Type: Spontaneous
  Country: US (occurrence: US)
  Receive Date: 20201020
  Receipt Date: 20201020
  Transmission Date: 20210114
  Serious: Yes (Disabling)
  Sender: FDA-Public Use
  Company Number: None

PATIENT
  Age: 72 Year
  Sex: Male
  Weight: 90.72 kg

DRUGS (10)
  1. VITAMIN D [Concomitant]
     Active Substance: VITAMIN D NOS
  2. ASPIRIN. [Concomitant]
     Active Substance: ASPIRIN
  3. COLOPLAST INTERNAL CATHETER [Suspect]
     Active Substance: DEVICE
  4. ANTIHYSTAMINE [Concomitant]
  5. FLUPHENAZINE [Suspect]
     Active Substance: FLUPHENAZINE
  6. MAGNESIUM [Concomitant]
     Active Substance: MAGNESIUM
  7. CALCIUM [Concomitant]
     Active Substance: CALCIUM
  8. ARIPIPRAZOLE. [Suspect]
     Active Substance: ARIPIPRAZOLE
     Indication: PSYCHOTIC DISORDER
     Dosage: ?          QUANTITY:1 DF DOSAGE FORM;?
     Route: 058
  9. TYLENOL [Concomitant]
     Active Substance: ACETAMINOPHEN
  10. STOOL SOFTENER (DOCUSATE) [Concomitant]
     Active Substance: DOCUSATE

REACTIONS (5)
  - Tooth extraction [None]
  - Weight increased [None]
  - Blood urine present [None]
  - Feeling of despair [None]
  - Loss of consciousness [None]

NARRATIVE: CASE EVENT DATE: 20161230
